FAERS Safety Report 7114610-4 (Version None)
Quarter: 2010Q4

REPORT INFORMATION
  Report Type: 
  Country: None (occurrence: None)
  Receive Date: 20101121
  Receipt Date: 20101108
  Transmission Date: 20110411
  Serious: Yes (Other)
  Sender: FDA-Public Use
  Company Number: CA-ELI_LILLY_AND_COMPANY-CA201011001963

PATIENT
  Sex: Male

DRUGS (9)
  1. ZYPREXA [Suspect]
     Indication: SCHIZOPHRENIA, PARANOID TYPE
     Dosage: 5 MG, EACH EVENING
     Route: 048
     Dates: start: 19970113
  2. ZYPREXA [Suspect]
     Dosage: 10 MG, AT BEDTIME ALONG WITH 15MG TABLET
     Route: 048
     Dates: start: 20071220
  3. ZYPREXA [Suspect]
     Dosage: 15 MG, 2 TABLETS AT BEDTIME
     Route: 048
     Dates: start: 20100608
  4. FLUANXOL [Concomitant]
     Dosage: 3 MG, 2/D
     Route: 048
  5. FLUANXOL [Concomitant]
     Dosage: 1 MG, DAILY (1/D)
     Route: 048
     Dates: start: 19970601
  6. VITAMIN E [Concomitant]
     Indication: DYSKINESIA
     Dosage: 400 IU, 2/D
     Route: 065
  7. SEROQUEL [Concomitant]
     Dosage: 25 MG, ONE-HALF TABLET AT BEDTIME FOR ONE WEEK, THEN ONE TABLET AT BEDTIME THEREAFTER
     Route: 048
     Dates: start: 20030812
  8. EFFEXOR [Concomitant]
     Dosage: 37.5 MG, EACH MORNING
     Route: 048
     Dates: start: 20030327
  9. EFFEXOR [Concomitant]
     Dosage: 25 MG, ONE-HALF TABLET AT BEDTIME FOR ONE WEEK THEN ONE TABLET AT BEDTIME THEREAFTER
     Route: 048
     Dates: start: 20030909

REACTIONS (7)
  - COMPARTMENT SYNDROME [None]
  - DIABETES MELLITUS [None]
  - HYPERLIPIDAEMIA [None]
  - HYPERTENSION [None]
  - OFF LABEL USE [None]
  - OVERDOSE [None]
  - WEIGHT INCREASED [None]
